FAERS Safety Report 7738639-8 (Version None)
Quarter: 2011Q3

REPORT INFORMATION
  Report Type: 
  Country: None (occurrence: None)
  Receive Date: 20110908
  Receipt Date: 20110906
  Transmission Date: 20111222
  Serious: Yes (Hospitalization)
  Sender: FDA-Public Use
  Company Number: JP-ABBOTT-11P-087-0849944-00

PATIENT
  Sex: Female

DRUGS (3)
  1. HUMIRA [Suspect]
  2. HUMIRA [Suspect]
  3. HUMIRA [Suspect]
     Indication: CROHN'S DISEASE
     Route: 058
     Dates: start: 20101209, end: 20101209

REACTIONS (3)
  - GASTROINTESTINAL STENOSIS [None]
  - GASTROINTESTINAL ULCER [None]
  - DRUG EFFECT INCREASED [None]
